FAERS Safety Report 8086406-0 (Version None)
Quarter: 2012Q1

REPORT INFORMATION
  Report Type: 
  Country: None (occurrence: None)
  Receive Date: 20120128
  Receipt Date: 20110510
  Transmission Date: 20120608
  Serious: No
  Sender: FDA-Public Use
  Company Number: US-ABBOTT-11P-163-0724720-00

PATIENT
  Sex: Female

DRUGS (3)
  1. HUMIRA [Suspect]
     Indication: CROHN'S DISEASE
     Dates: start: 20100801
  2. TRAMADOL HCL [Concomitant]
     Indication: ABDOMINAL PAIN UPPER
     Route: 048
  3. ASPIRIN [Concomitant]
     Indication: PAIN
     Route: 048

REACTIONS (2)
  - HAIR GROWTH ABNORMAL [None]
  - ALOPECIA [None]
